FAERS Safety Report 18402269 (Version 5)
Quarter: 2022Q2

REPORT INFORMATION
  Report Type: Spontaneous
  Country: NL (occurrence: NL)
  Receive Date: 20201019
  Receipt Date: 20220506
  Transmission Date: 20220721
  Serious: Yes (Other)
  Sender: FDA-Public Use
  Company Number: NL-INDIVIOR EUROPE LIMITED-INDV-123462-2020

PATIENT

DRUGS (29)
  1. SUBOXONE [Interacting]
     Active Substance: BUPRENORPHINE HYDROCHLORIDE\NALOXONE HYDROCHLORIDE
     Indication: Drug dependence
     Dosage: 2MG, QID
     Route: 060
     Dates: start: 20191122, end: 201911
  2. SUBOXONE [Interacting]
     Active Substance: BUPRENORPHINE HYDROCHLORIDE\NALOXONE HYDROCHLORIDE
     Indication: Pain management
     Dosage: 2 MG, TID
     Route: 060
     Dates: start: 20191125, end: 2019
  3. SUBOXONE [Interacting]
     Active Substance: BUPRENORPHINE HYDROCHLORIDE\NALOXONE HYDROCHLORIDE
     Dosage: 12 MILIGRAM EVERY 8 HOURS
     Route: 065
     Dates: start: 20211227
  4. SUBOXONE [Interacting]
     Active Substance: BUPRENORPHINE HYDROCHLORIDE\NALOXONE HYDROCHLORIDE
     Dosage: TAKING LESS TO 2MG
     Route: 065
  5. SUBOXONE [Interacting]
     Active Substance: BUPRENORPHINE HYDROCHLORIDE\NALOXONE HYDROCHLORIDE
     Dosage: 2 MILLIGRAM, TID (TAKING 2X2 TABLET)
     Route: 065
     Dates: start: 20220102
  6. SUBOXONE [Interacting]
     Active Substance: BUPRENORPHINE HYDROCHLORIDE\NALOXONE HYDROCHLORIDE
     Indication: Drug dependence
     Dosage: UNK
     Route: 065
     Dates: start: 2016
  7. SUBOXONE [Interacting]
     Active Substance: BUPRENORPHINE HYDROCHLORIDE\NALOXONE HYDROCHLORIDE
     Indication: Pain management
     Dosage: 8 MG, QID WITH ANOTHER 8 MG DAILY IF PAIN DICTATED
     Route: 060
     Dates: start: 2019, end: 2019
  8. SUBOXONE [Interacting]
     Active Substance: BUPRENORPHINE HYDROCHLORIDE\NALOXONE HYDROCHLORIDE
     Dosage: HIGH DOSAGE OF 4-5 TIMES THE 8 MG
     Route: 060
     Dates: start: 20191230, end: 202001
  9. SUBOXONE [Interacting]
     Active Substance: BUPRENORPHINE HYDROCHLORIDE\NALOXONE HYDROCHLORIDE
     Dosage: 8 MILLIGRAM, TID
     Route: 060
     Dates: start: 202201
  10. MODAFINIL [Interacting]
     Active Substance: MODAFINIL
     Indication: Attention deficit hyperactivity disorder
     Dosage: 100 MG TABLET, QD
     Route: 048
     Dates: start: 20191106
  11. MODAFINIL [Interacting]
     Active Substance: MODAFINIL
     Dosage: 400 MG, QD
     Route: 048
     Dates: start: 20200131
  12. MODAFINIL [Interacting]
     Active Substance: MODAFINIL
     Dosage: 50 MILLIGRAM
     Route: 065
     Dates: start: 20220309
  13. OXYCODONE [Suspect]
     Active Substance: OXYCODONE
     Indication: Back pain
     Dosage: 500 MILLIGRAM
     Route: 065
     Dates: start: 201506
  14. OXYCODONE [Suspect]
     Active Substance: OXYCODONE
     Indication: Hyperhidrosis
     Dosage: 40 MILLIGRAM, EVERY 8 HOURS (120 MILLIGRAM PER DAY)
     Route: 065
     Dates: start: 201909, end: 20211231
  15. OXYCODONE [Suspect]
     Active Substance: OXYCODONE
     Dosage: 100 MILLIGRAM, QD
     Route: 065
     Dates: start: 2019
  16. OXYCODONE [Suspect]
     Active Substance: OXYCODONE
     Dosage: 150 MILLIGRAM, UNK
     Route: 065
  17. OXYCODONE [Suspect]
     Active Substance: OXYCODONE
     Dosage: 300 MILLIGRAM, QD
     Route: 065
     Dates: start: 20200127, end: 20220131
  18. OMEPRAZOL                          /00661201/ [Concomitant]
     Indication: Product used for unknown indication
     Dosage: 40 MG, BID (MSR CAPSULE)
     Route: 048
     Dates: start: 20191112
  19. OMEPRAZOL                          /00661201/ [Concomitant]
     Dosage: 40 MG, BID (MSR CAPSULE)
     Route: 048
     Dates: start: 20200129
  20. ACETAMINOPHEN [Concomitant]
     Active Substance: ACETAMINOPHEN
     Indication: Product used for unknown indication
     Dosage: 1000 MG, QID (TABLET)
     Route: 048
     Dates: start: 20191107
  21. ACETAMINOPHEN [Concomitant]
     Active Substance: ACETAMINOPHEN
     Dosage: 1000 MG, QID (SUGGESTED TO TAKE AT SAME TIME AS SUBOXONE)
     Route: 048
     Dates: start: 20200124
  22. BUDESONIDE [Concomitant]
     Active Substance: BUDESONIDE
     Indication: Product used for unknown indication
     Dosage: 50 MCG, PRN (NASAL SPRAY)
     Route: 045
     Dates: start: 20191104
  23. CETIRIZINE [Concomitant]
     Active Substance: CETIRIZINE HYDROCHLORIDE
     Indication: Pruritus
     Dosage: 10 MG, QD
     Route: 048
     Dates: start: 20200130
  24. CLONIDINE [Concomitant]
     Active Substance: CLONIDINE
     Indication: Hyperhidrosis
     Dosage: 50 MCG, QD
     Route: 048
     Dates: start: 20200124
  25. CLONIDINE [Concomitant]
     Active Substance: CLONIDINE
     Indication: Pruritus
     Dosage: 8X0.025 MILLIGRAM, QID
     Route: 065
     Dates: start: 2020
  26. CLONIDINE [Concomitant]
     Active Substance: CLONIDINE
     Dosage: 0.025 MGX4 PER DAY
     Route: 065
  27. DULOXETINE [Concomitant]
     Active Substance: DULOXETINE
     Indication: Product used for unknown indication
     Dosage: 60 MILLIGRAM, QD
     Route: 065
  28. PIPAMPERONE HYDROCHLORIDE [Concomitant]
     Active Substance: PIPAMPERONE HYDROCHLORIDE
     Indication: Product used for unknown indication
     Dosage: 20 MILLIGRAM, QD
     Route: 065
  29. DIAZEPAM [Concomitant]
     Active Substance: DIAZEPAM
     Indication: Musculoskeletal discomfort
     Dosage: 1 WEEK A MONTH 100MG IN DIVIDED OVER 2 DAYS
     Route: 065

REACTIONS (18)
  - Suicidal ideation [Recovered/Resolved]
  - Aggression [Unknown]
  - Dysgeusia [Unknown]
  - Drug effect less than expected [Unknown]
  - Inappropriate schedule of product administration [Not Recovered/Not Resolved]
  - Intentional product use issue [Recovered/Resolved]
  - Drug interaction [Recovered/Resolved]
  - Depression [Not Recovered/Not Resolved]
  - Back pain [Unknown]
  - Headache [Not Recovered/Not Resolved]
  - Hyperhidrosis [Not Recovered/Not Resolved]
  - Nausea [Unknown]
  - Pain in extremity [Unknown]
  - Intentional underdose [Unknown]
  - Muscle spasms [Unknown]
  - Drug dependence [Recovered/Resolved]
  - Pruritus [Unknown]
  - Tremor [Unknown]

NARRATIVE: CASE EVENT DATE: 20160101
